FAERS Safety Report 16453709 (Version 1)
Quarter: 2019Q2

REPORT INFORMATION
  Report Type: Spontaneous
  Country: US (occurrence: US)
  Receive Date: 20190619
  Receipt Date: 20190619
  Transmission Date: 20190711
  Serious: Yes (Other)
  Sender: FDA-Public Use
  Company Number: US-PFIZER INC-2019251324

PATIENT

DRUGS (1)
  1. FENOLDOPAM MESILATE [Suspect]
     Active Substance: FENOLDOPAM MESYLATE
     Dosage: UNK

REACTIONS (3)
  - Ventricular tachycardia [Unknown]
  - Atrial fibrillation [Unknown]
  - Incorrect product administration duration [Unknown]
